FAERS Safety Report 5964271-2 (Version None)
Quarter: 2008Q4

REPORT INFORMATION
  Report Type: 
  Country: None (occurrence: None)
  Receive Date: 20081124
  Receipt Date: 20081117
  Transmission Date: 20090506
  Serious: Yes (Hospitalization)
  Sender: FDA-Public Use
  Company Number: BR-ABBOTT-08P-020-0488221-00

PATIENT
  Sex: Female

DRUGS (6)
  1. AKINETON [Suspect]
     Indication: ABNORMAL BEHAVIOUR
     Dosage: 1 - 2 MILLIGRAM TABLET
     Route: 048
     Dates: start: 19750101
  2. AKINETON [Suspect]
     Indication: SUICIDAL BEHAVIOUR
     Route: 048
  3. AKINETON [Suspect]
     Route: 048
  4. HALOPERIDOL [Concomitant]
     Indication: DRUG USE FOR UNKNOWN INDICATION
     Dosage: 5 MILLIGRAMS
     Route: 048
  5. PHENOBARBITAL TAB [Concomitant]
     Indication: DRUG USE FOR UNKNOWN INDICATION
     Dosage: 100 MILLIGRAMS
     Route: 048
  6. LEVOMEPROMAZINE [Concomitant]
     Indication: DRUG USE FOR UNKNOWN INDICATION
     Route: 048

REACTIONS (4)
  - ABNORMAL BEHAVIOUR [None]
  - DIZZINESS [None]
  - SENSORY DISTURBANCE [None]
  - SUICIDAL BEHAVIOUR [None]
